FAERS Safety Report 6231158-X (Version None)
Quarter: 2009Q2

REPORT INFORMATION
  Report Type: 
  Country: None (occurrence: None)
  Receive Date: 20090616
  Receipt Date: 20090320
  Transmission Date: 20091009
  Serious: No
  Sender: FDA-Public Use
  Company Number: US-BAYER-200917444NA

PATIENT
  Sex: Female

DRUGS (2)
  1. YAZ [Suspect]
     Indication: DRUG USE FOR UNKNOWN INDICATION
     Route: 048
  2. YASMIN [Concomitant]
     Dosage: FOR 3 MONTHS

REACTIONS (1)
  - ABNORMAL WITHDRAWAL BLEEDING [None]
